FAERS Safety Report 8654673 (Version 2)
Quarter: 2012Q4

REPORT INFORMATION
  Report Type: Report from Study
  Country: JP (occurrence: JP)
  Receive Date: 20120709
  Receipt Date: 20120904
  Transmission Date: 20130627
  Serious: Yes (Hospitalization)
  Sender: FDA-Public Use
  Company Number: JP-ROCHE-1083968

PATIENT
  Age: 61 Year
  Sex: Female

DRUGS (15)
  1. OMALIZUMAB [Suspect]
     Indication: ASTHMA
     Route: 058
     Dates: start: 20110509
  2. OMALIZUMAB [Suspect]
     Dates: start: 20111005
  3. OMALIZUMAB [Suspect]
     Dates: start: 20111109
  4. OMALIZUMAB [Suspect]
     Dates: start: 20120328
  5. OMALIZUMAB [Suspect]
     Dates: start: 20120425
  6. ADOAIR [Concomitant]
     Dates: start: 2004
  7. SINGULAIR [Concomitant]
     Dates: start: 2004
  8. UNIPHYL [Concomitant]
     Dates: start: 2004
  9. PREDNISOLONE [Concomitant]
     Dates: start: 2010
  10. PARIET [Concomitant]
  11. FOSAMAX [Concomitant]
  12. ALDACTONE [Concomitant]
  13. LASIX [Concomitant]
  14. FLUTICASONE PROPIONATE/SALMETEROL [Concomitant]
     Dates: start: 2004
  15. ALENDRONATE [Concomitant]

REACTIONS (1)
  - Asthma [Recovered/Resolved]
